FAERS Safety Report 23519844 (Version 1)
Quarter: 2024Q1

REPORT INFORMATION
  Report Type: Report from Study
  Country: US (occurrence: US)
  Receive Date: 20240213
  Receipt Date: 20240213
  Transmission Date: 20240409
  Serious: Yes (Other)
  Sender: FDA-Public Use
  Company Number: US-ABBVIE-5633215

PATIENT
  Sex: Male

DRUGS (1)
  1. HUMIRA [Suspect]
     Active Substance: ADALIMUMAB
     Indication: Crohn^s disease
     Dosage: FORM STRENGTH: 40 MG, CITRATE FREE
     Route: 058
     Dates: start: 20170216

REACTIONS (7)
  - Hernia [Not Recovered/Not Resolved]
  - Abdominal pain [Recovered/Resolved]
  - Gallbladder operation [Not Recovered/Not Resolved]
  - Hot flush [Unknown]
  - Night sweats [Unknown]
  - Pain [Not Recovered/Not Resolved]
  - Prostate cancer [Not Recovered/Not Resolved]
